FAERS Safety Report 4458186-9 (Version None)
Quarter: 2004Q3

REPORT INFORMATION
  Report Type: 
  Country: None (occurrence: None)
  Receive Date: 20040922
  Receipt Date: 20040916
  Transmission Date: 20050211
  Serious: Yes (Hospitalization)
  Sender: FDA-Public Use
  Company Number: 2004CG01844

PATIENT
  Age: 39 Year
  Sex: Male

DRUGS (2)
  1. MOPRAL [Suspect]
     Indication: ABDOMINAL PAIN UPPER
     Dosage: 10 MG DAILY PO
     Route: 048
     Dates: start: 20040806, end: 20040808
  2. PARIET [Suspect]
     Indication: ABDOMINAL PAIN UPPER
     Dates: end: 20040806

REACTIONS (12)
  - BONE PAIN [None]
  - CONDITION AGGRAVATED [None]
  - FACE OEDEMA [None]
  - HYPERTENSION [None]
  - MOBILITY DECREASED [None]
  - MUSCLE CONTRACTURE [None]
  - MYALGIA [None]
  - NECK PAIN [None]
  - NORMOCHROMIC NORMOCYTIC ANAEMIA [None]
  - OEDEMA PERIPHERAL [None]
  - PROTEINURIA [None]
  - RENAL FAILURE ACUTE [None]
